FAERS Safety Report 7788769-X (Version None)
Quarter: 2011Q3

REPORT INFORMATION
  Report Type: 
  Country: None (occurrence: None)
  Receive Date: 20110930
  Receipt Date: 20110921
  Transmission Date: 20111222
  Serious: Yes (Disabling)
  Sender: FDA-Public Use
  Company Number: DE-ASTRAZENECA-2011SE43075

PATIENT
  Age: 60 Year
  Sex: Female
  Weight: 72.5 kg

DRUGS (1)
  1. ARIMIDEX [Suspect]
     Indication: BREAST CANCER
     Route: 048
     Dates: start: 20100701

REACTIONS (9)
  - PAIN IN EXTREMITY [None]
  - FEELING COLD [None]
  - MYALGIA [None]
  - MUSCULOSKELETAL STIFFNESS [None]
  - ALOPECIA [None]
  - MUSCULOSKELETAL DISCOMFORT [None]
  - MUSCLE SPASMS [None]
  - ARTHRALGIA [None]
  - HOT FLUSH [None]
